FAERS Safety Report 9643995 (Version 4)
Quarter: 2013Q4

REPORT INFORMATION
  Report Type: Spontaneous
  Country: FR (occurrence: None)
  Receive Date: 20131023
  Receipt Date: 20131213
  Transmission Date: 20140711
  Serious: Yes (Death, Life-Threatening, Hospitalization)
  Sender: FDA-Public Use
  Company Number: 2013FR002649

PATIENT
  Age: 56 Year
  Sex: Male

DRUGS (8)
  1. PONATINIB [Suspect]
     Indication: CHRONIC MYELOID LEUKAEMIA
     Route: 048
     Dates: start: 20130218, end: 20130423
  2. PONATINIB [Suspect]
     Indication: DRUG RESISTANCE
     Route: 048
     Dates: start: 20130218, end: 20130423
  3. PONATINIB [Suspect]
     Indication: DRUG INTOLERANCE
     Route: 048
     Dates: start: 20130218, end: 20130423
  4. BI-TILDIEM (DILTIAZEM HYDROCHLORIDE) TABLET [Concomitant]
  5. KARDEGIC (ACETYLSALICYLATE LYSINE) [Concomitant]
  6. CRESTOR (ROSUVASTATIN CALCIUM) TABLET [Concomitant]
  7. INEXIUM (ESOMEPRAZOLE MAGNESIUM) TABLET [Concomitant]
  8. TRINITRINE (GLYCERYL TRINITRATE) PATCH [Concomitant]

REACTIONS (16)
  - Myocardial ischaemia [None]
  - Myocardial infarction [None]
  - Cardiogenic shock [None]
  - Coronary artery restenosis [None]
  - Acute coronary syndrome [None]
  - Bradycardia [None]
  - Hepatocellular injury [None]
  - Tricuspid valve incompetence [None]
  - Cardiac arrest [None]
  - Pulmonary embolism [None]
  - Ventricular fibrillation [None]
  - Coronary artery occlusion [None]
  - Ventricular hypokinesia [None]
  - Dilatation ventricular [None]
  - Pulseless electrical activity [None]
  - Right ventricular dysfunction [None]
